FAERS Safety Report 20110150 (Version 1)
Quarter: 2021Q4

REPORT INFORMATION
  Report Type: Spontaneous
  Country: US (occurrence: US)
  Receive Date: 20211124
  Receipt Date: 20211124
  Transmission Date: 20220303
  Serious: No
  Sender: FDA-Public Use
  Company Number: US-BAYER-2021A254476

PATIENT
  Age: 11 Year
  Sex: Male

DRUGS (3)
  1. JIVI [Suspect]
     Active Substance: DAMOCTOCOG ALFA PEGOL
     Dosage: 2000 IU
  2. JIVI [Suspect]
     Active Substance: DAMOCTOCOG ALFA PEGOL
     Dosage: 2000 IU, QD, FOR THE FINGER INJURY TREATMENT
     Dates: start: 20211030
  3. JIVI [Suspect]
     Active Substance: DAMOCTOCOG ALFA PEGOL
     Dosage: 1000 IU, QD
     Dates: start: 20211104

REACTIONS (2)
  - Limb injury [None]
  - Incorrect dose administered [None]

NARRATIVE: CASE EVENT DATE: 20211030
